FAERS Safety Report 5258912-5 (Version None)
Quarter: 2007Q1

REPORT INFORMATION
  Report Type: 
  Country: None (occurrence: None)
  Receive Date: 20070308
  Receipt Date: 20070226
  Transmission Date: 20070707
  Serious: Yes (Other)
  Sender: FDA-Public Use
  Company Number: 200710859EU

PATIENT
  Sex: Male

DRUGS (1)
  1. NICORETTE [Suspect]
     Dosage: 7GUM PER DAY
     Route: 002
     Dates: start: 20060907

REACTIONS (1)
  - DEPENDENCE [None]
